FAERS Safety Report 17546308 (Version 3)
Quarter: 2021Q1

REPORT INFORMATION
  Report Type: Spontaneous
  Country: JP (occurrence: JP)
  Receive Date: 20200316
  Receipt Date: 20210309
  Transmission Date: 20210419
  Serious: Yes (Other)
  Sender: FDA-Public Use
  Company Number: JP-ABBVIE-20K-087-3318660-00

PATIENT
  Age: 69 Year
  Sex: Male

DRUGS (4)
  1. NAFAMOSTAT MESYLATE [Concomitant]
     Active Substance: NAFAMOSTAT MESYLATE
     Indication: ANTICOAGULANT THERAPY
     Dosage: 0.2?0.4 MG/KG/HR
     Dates: start: 2020
  2. HYDROXYCHLOROQUINE SULFATE. [Concomitant]
     Active Substance: HYDROXYCHLOROQUINE SULFATE
     Indication: CORONAVIRUS INFECTION
     Dosage: ENDED ON DAY 9
     Route: 048
     Dates: start: 2020
  3. KALETRA [Suspect]
     Active Substance: LOPINAVIR\RITONAVIR
     Indication: CORONAVIRUS INFECTION
     Dosage: (800/200 MG)
     Route: 048
     Dates: start: 20200219, end: 202002
  4. ROCURONIUM [Concomitant]
     Active Substance: ROCURONIUM BROMIDE
     Indication: MUSCLE RELAXANT THERAPY
     Dates: start: 2020, end: 2020

REACTIONS (5)
  - Drug ineffective for unapproved indication [Unknown]
  - Blood bilirubin increased [Unknown]
  - Renal disorder [Unknown]
  - Off label use [Unknown]
  - Respiratory failure [Recovering/Resolving]

NARRATIVE: CASE EVENT DATE: 2020
